FAERS Safety Report 5474721-6 (Version None)
Quarter: 2007Q3

REPORT INFORMATION
  Report Type: 
  Country: None (occurrence: None)
  Receive Date: 20070928
  Receipt Date: 20070914
  Transmission Date: 20080115
  Serious: Yes (Life-Threatening, Hospitalization)
  Sender: FDA-Public Use
  Company Number: 161566ISR

PATIENT
  Age: 67 Year
  Sex: Male

DRUGS (5)
  1. CISPLATIN [Suspect]
     Indication: SMALL CELL LUNG CANCER STAGE UNSPECIFIED
     Dosage: 150MG (80MG/M2, DAY 1 EVERY 3 WEEKS) INTRAVENOUS
     Route: 042
     Dates: start: 20070705
  2. ETOPOSIDE [Suspect]
     Indication: SMALL CELL LUNG CANCER STAGE UNSPECIFIED
     Dosage: 600 MG (100MG/M2, DAY 1, 2, 3, EVERY 3 WEEKS) INTRAVENOUS
     Route: 042
     Dates: start: 20070705
  3. ESOMEPRAZOLE MAGNESIUM [Concomitant]
  4. DEXAMETHASONE 0.5MG TAB [Concomitant]
  5. CARBAMAZEPINE [Concomitant]

REACTIONS (5)
  - DISEASE PROGRESSION [None]
  - EPILEPSY [None]
  - PNEUMONIA [None]
  - RESPIRATORY DISTRESS [None]
  - SEPTIC SHOCK [None]
